FAERS Safety Report 4692886-0 (Version None)
Quarter: 2005Q2

REPORT INFORMATION
  Report Type: 
  Country: None (occurrence: None)
  Receive Date: 20050615
  Receipt Date: 20050531
  Transmission Date: 20051028
  Serious: Yes (Other)
  Sender: FDA-Public Use
  Company Number: JP_050606701

PATIENT
  Age: 83 Year
  Sex: Female

DRUGS (3)
  1. EVISTA [Suspect]
     Indication: OSTEOPOROSIS
     Dosage: 60 MG/1 DAY
     Dates: start: 20050228, end: 20050509
  2. VITAMIN D3` [Concomitant]
  3. TOCOPHERYL ACETATE [Concomitant]

REACTIONS (3)
  - FACIAL PAIN [None]
  - HERPES ZOSTER [None]
  - POST HERPETIC NEURALGIA [None]
